FAERS Safety Report 9535366 (Version 1)
Quarter: 2013Q3

REPORT INFORMATION
  Report Type: Spontaneous
  Country: US (occurrence: US)
  Receive Date: 20130918
  Receipt Date: 20130918
  Transmission Date: 20140515
  Serious: Yes (Other)
  Sender: FDA-Public Use
  Company Number: US-NAPPMUNDI-USA-2012-0088938

PATIENT
  Sex: Female

DRUGS (1)
  1. DILAUDID INJECTION [Suspect]
     Indication: BACK PAIN
     Dosage: UNK
     Dates: start: 2007, end: 2007

REACTIONS (2)
  - Urinary retention [Recovered/Resolved]
  - Thirst [Recovered/Resolved]
